FAERS Safety Report 6742374-2 (Version None)
Quarter: 2010Q2

REPORT INFORMATION
  Report Type: 
  Country: None (occurrence: None)
  Receive Date: 20100526
  Receipt Date: 20100520
  Transmission Date: 20101027
  Serious: Yes (Other)
  Sender: FDA-Public Use
  Company Number: BR-SANOFI-AVENTIS-2010SA029436

PATIENT
  Sex: Male
  Weight: 80 kg

DRUGS (1)
  1. LANTUS [Suspect]
     Route: 058
     Dates: start: 20060101

REACTIONS (1)
  - WOUND NECROSIS [None]
